FAERS Safety Report 22338963 (Version 2)
Quarter: 2024Q4

REPORT INFORMATION
  Report Type: Report from Study
  Country: US (occurrence: US)
  Receive Date: 20230518
  Receipt Date: 20241022
  Transmission Date: 20250114
  Serious: Yes (Other)
  Sender: JAZZ
  Company Number: US-JAZZ PHARMACEUTICALS-2023-US-004701

PATIENT
  Age: 66 Year
  Sex: Male

DRUGS (8)
  1. XYWAV [Suspect]
     Active Substance: CALCIUM OXYBATE\MAGNESIUM OXYBATE\POTASSIUM OXYBATE\SODIUM OXYBATE
     Indication: Narcolepsy
     Dosage: 3.75 GRAM, BID
  2. XYWAV [Suspect]
     Active Substance: CALCIUM OXYBATE\MAGNESIUM OXYBATE\POTASSIUM OXYBATE\SODIUM OXYBATE
     Indication: Cataplexy
  3. XYWAV [Suspect]
     Active Substance: CALCIUM OXYBATE\MAGNESIUM OXYBATE\POTASSIUM OXYBATE\SODIUM OXYBATE
     Indication: Somnolence
  4. METOPROLOL TARTRATE [Concomitant]
     Active Substance: METOPROLOL TARTRATE
     Indication: Product used for unknown indication
     Dosage: 0010
     Dates: start: 20160108
  5. ASPIRIN [Concomitant]
     Active Substance: ASPIRIN
     Indication: Product used for unknown indication
     Dosage: UNK UNK, QD
     Dates: start: 20160108
  6. LIPITOR [Concomitant]
     Active Substance: ATORVASTATIN CALCIUM
     Indication: Product used for unknown indication
     Dosage: UNK UNK, QD
     Dates: start: 20160108
  7. ADDERALL [Concomitant]
     Active Substance: AMPHETAMINE ASPARTATE\AMPHETAMINE SULFATE\DEXTROAMPHETAMINE SACCHARATE\DEXTROAMPHETAMINE SULFATE
     Indication: Product used for unknown indication
     Dosage: UNK UNK, QD
     Dates: start: 20160108
  8. ALCOHOL [Concomitant]
     Active Substance: ALCOHOL
     Indication: Product used for unknown indication
     Dosage: 0000
     Dates: start: 20160120

REACTIONS (2)
  - Breast cancer [Unknown]
  - Cardiac disorder [Unknown]

NARRATIVE: CASE EVENT DATE: 20221210
